FAERS Safety Report 9173936 (Version 3)
Quarter: 2013Q3

REPORT INFORMATION
  Report Type: Spontaneous
  Country: AU (occurrence: AU)
  Receive Date: 20130320
  Receipt Date: 20130801
  Transmission Date: 20140515
  Serious: Yes (Hospitalization, Other)
  Sender: FDA-Public Use
  Company Number: AU-SANOFI-AVENTIS-2013SA027160

PATIENT
  Age: 36 Year
  Sex: Female
  Weight: 93 kg

DRUGS (7)
  1. AUBAGIO [Suspect]
     Indication: RELAPSING-REMITTING MULTIPLE SCLEROSIS
     Route: 048
     Dates: start: 20130222
  2. LAMOTRIGINE [Concomitant]
     Route: 048
  3. OXYCONTIN [Concomitant]
     Route: 048
  4. DITROPAN [Concomitant]
     Route: 048
  5. AMITRIPTYLINE [Concomitant]
     Route: 048
  6. DIAZEPAM [Concomitant]
     Route: 048
  7. RITALIN [Concomitant]

REACTIONS (3)
  - Appendicectomy [Recovered/Resolved]
  - Abdominal pain [Unknown]
  - Candida infection [Recovered/Resolved]
